FAERS Safety Report 7410151-5 (Version None)
Quarter: 2011Q2

REPORT INFORMATION
  Report Type: 
  Country: None (occurrence: None)
  Receive Date: 20110412
  Receipt Date: 20110330
  Transmission Date: 20111010
  Serious: Yes (Death)
  Sender: FDA-Public Use
  Company Number: US-MYLANLABS-2011S1006866

PATIENT
  Sex: Male

DRUGS (2)
  1. WARFARIN [Suspect]
     Indication: PERIPHERAL VASCULAR DISORDER
     Route: 065
  2. WARFARIN [Suspect]

REACTIONS (5)
  - HAEMORRHAGE [None]
  - OVERDOSE [None]
  - TOXICITY TO VARIOUS AGENTS [None]
  - SUBDURAL HAEMATOMA [None]
  - DRUG PRESCRIBING ERROR [None]
